FAERS Safety Report 15722086 (Version 1)
Quarter: 2018Q4

REPORT INFORMATION
  Report Type: Report from Study
  Country: CZ (occurrence: CZ)
  Receive Date: 20181214
  Receipt Date: 20181214
  Transmission Date: 20190205
  Serious: Yes (Other)
  Sender: FDA-Public Use
  Company Number: CZ-TEVA-2018-CZ-845428

PATIENT
  Age: 16 Year
  Sex: Female
  Weight: 57 kg

DRUGS (2)
  1. COPAXONE [Suspect]
     Active Substance: GLATIRAMER ACETATE
     Indication: CLINICALLY ISOLATED SYNDROME
     Route: 058
     Dates: start: 20180108, end: 201811
  2. PREDNISON 20 MG [Concomitant]
     Active Substance: PREDNISONE
     Indication: CLINICALLY ISOLATED SYNDROME
     Dosage: 60 MILLIGRAM PER GRAM DAILY;
     Route: 048
     Dates: start: 2017

REACTIONS (11)
  - Injection site pain [Recovered/Resolved]
  - Injection site papule [Recovered/Resolved]
  - Insomnia [Recovering/Resolving]
  - Application site pain [Recovered/Resolved]
  - Product use issue [Unknown]
  - Mental disorder [Recovering/Resolving]
  - Depression [Recovering/Resolving]
  - Injection site erythema [Recovered/Resolved]
  - Injection site swelling [Recovered/Resolved]
  - Application site erythema [Recovered/Resolved]
  - Injection site induration [Recovered/Resolved]

NARRATIVE: CASE EVENT DATE: 20180108
